FAERS Safety Report 14080764 (Version 3)
Quarter: 2017Q4

REPORT INFORMATION
  Report Type: Spontaneous
  Country: US (occurrence: US)
  Receive Date: 20171012
  Receipt Date: 20171102
  Transmission Date: 20180321
  Serious: No
  Sender: FDA-Public Use
  Company Number: US-ASTRAZENECA-2017SF02725

PATIENT
  Age: 21032 Day
  Sex: Female
  Weight: 120.2 kg

DRUGS (5)
  1. BYETTA [Suspect]
     Active Substance: EXENATIDE
     Indication: TYPE 2 DIABETES MELLITUS
     Route: 058
  2. TYLENOL [Concomitant]
     Active Substance: ACETAMINOPHEN
     Indication: MIGRAINE
  3. BYDUREON [Concomitant]
     Active Substance: EXENATIDE
  4. BYETTA [Suspect]
     Active Substance: EXENATIDE
     Indication: TYPE 2 DIABETES MELLITUS
     Route: 058
     Dates: start: 20171013, end: 20171023
  5. TACROLIMUS. [Concomitant]
     Active Substance: TACROLIMUS
     Indication: GRANULOMA ANNULARE
     Route: 061

REACTIONS (20)
  - Blood glucose increased [Unknown]
  - Abdominal pain [Recovering/Resolving]
  - Diabetes mellitus [Unknown]
  - Peripheral swelling [Recovering/Resolving]
  - Anorectal discomfort [Recovering/Resolving]
  - Abdominal pain upper [Recovering/Resolving]
  - Diarrhoea [Unknown]
  - Food allergy [Unknown]
  - Vulvovaginal burning sensation [Recovering/Resolving]
  - Injection site pain [Unknown]
  - Sensation of foreign body [Unknown]
  - Pain [Recovering/Resolving]
  - Product use issue [Unknown]
  - Migraine [Recovering/Resolving]
  - Vaginal discharge [Recovering/Resolving]
  - Circumstance or information capable of leading to medication error [Unknown]
  - Wound secretion [Recovering/Resolving]
  - Rectal discharge [Recovering/Resolving]
  - Gastrooesophageal reflux disease [Recovering/Resolving]
  - Weight decreased [Unknown]

NARRATIVE: CASE EVENT DATE: 20171022
